FAERS Safety Report 9903003 (Version 1)
Quarter: 2014Q1

REPORT INFORMATION
  Report Type: Spontaneous
  Country: ES (occurrence: ES)
  Receive Date: 20140217
  Receipt Date: 20140217
  Transmission Date: 20141002
  Serious: Yes (Other)
  Sender: FDA-Public Use
  Company Number: PHHY2014ES017150

PATIENT
  Age: 42 Year
  Sex: Female

DRUGS (2)
  1. CARBAMAZEPINE [Suspect]
  2. LEVETIRACETAM [Suspect]

REACTIONS (5)
  - Autosomal chromosome anomaly [Unknown]
  - Electroencephalogram abnormal [Unknown]
  - Bruxism [Unknown]
  - Neurological decompensation [Unknown]
  - Disease progression [Unknown]
